FAERS Safety Report 8368076-7 (Version None)
Quarter: 2012Q2

REPORT INFORMATION
  Report Type: 
  Country: None (occurrence: None)
  Receive Date: 20120517
  Receipt Date: 20120515
  Transmission Date: 20120825
  Serious: Yes (Other)
  Sender: FDA-Public Use
  Company Number: BR-PFIZER INC-2012118885

PATIENT
  Age: 58 Year
  Sex: Male

DRUGS (2)
  1. CELEBREX [Suspect]
     Indication: ABDOMINAL PAIN
     Dosage: 200 MG (ONE CAPSULE), 1X/DAY
     Route: 048
     Dates: start: 20110101, end: 20110101
  2. CELEBREX [Suspect]
     Indication: NECK PAIN

REACTIONS (3)
  - ABDOMINAL PAIN [None]
  - ROAD TRAFFIC ACCIDENT [None]
  - NECK PAIN [None]
